FAERS Safety Report 15265945 (Version 1)
Quarter: 2018Q3

REPORT INFORMATION
  Report Type: Spontaneous
  Country: US (occurrence: US)
  Receive Date: 20180810
  Receipt Date: 20180810
  Transmission Date: 20181010
  Serious: No
  Sender: FDA-Public Use
  Company Number: US-GLAXOSMITHKLINE-US2018140090

PATIENT
  Age: 64 Year
  Sex: Male

DRUGS (1)
  1. ABREVA [Suspect]
     Active Substance: DOCOSANOL
     Indication: CHEILITIS
     Dosage: UNK
     Dates: start: 20180801, end: 20180802

REACTIONS (4)
  - Off label use [Unknown]
  - Condition aggravated [Unknown]
  - Incorrect drug administration duration [Unknown]
  - Cheilitis [Unknown]

NARRATIVE: CASE EVENT DATE: 20180801
